FAERS Safety Report 10840760 (Version 1)
Quarter: 2015Q1

REPORT INFORMATION
  Report Type: Spontaneous
  Country: DE (occurrence: None)
  Receive Date: 20150218
  Receipt Date: 20150218
  Transmission Date: 20150721
  Serious: Yes (Other)
  Sender: FDA-Public Use
  Company Number: FK201500732

PATIENT
  Age: 54 Year
  Sex: Female

DRUGS (4)
  1. CETUXIMAB (CETUXIMAB) (CETUXIMAB) [Suspect]
     Active Substance: CETUXIMAB
     Indication: NON-SMALL CELL LUNG CANCER METASTATIC
     Dosage: CYCLICAL
  2. GEMCITABINE (MANUFACTURER UNKNOWN) (GEMCITABINE) (GEMCITABINE) [Suspect]
     Active Substance: GEMCITABINE HYDROCHLORIDE
     Indication: NON-SMALL CELL LUNG CANCER METASTATIC
     Dosage: CYCLICAL
  3. CILENGITIDE [Suspect]
     Active Substance: CILENGITIDE
     Indication: NON-SMALL CELL LUNG CANCER METASTATIC
     Dosage: CYCLICAL
  4. CISPLATIN (MANUFACTURER UNKNOWN) (CISPLATIN) (CISPLATIN) [Suspect]
     Active Substance: CISPLATIN
     Indication: NON-SMALL CELL LUNG CANCER METASTATIC
     Dosage: CYCLICAL

REACTIONS (3)
  - Thrombocytosis [None]
  - Visual field defect [None]
  - Aortic thrombosis [None]
